FAERS Safety Report 15038182 (Version 1)
Quarter: 2018Q2

REPORT INFORMATION
  Report Type: Report from Study
  Country: CA (occurrence: CA)
  Receive Date: 20180620
  Receipt Date: 20180620
  Transmission Date: 20180711
  Serious: No
  Sender: FDA-Public Use
  Company Number: CA-TEVA-2018-CA-908493

PATIENT
  Age: 34 Year
  Sex: Female

DRUGS (5)
  1. MICRONOR [Concomitant]
     Active Substance: NORETHINDRONE
  2. COPAXONE [Suspect]
     Active Substance: GLATIRAMER ACETATE
     Dosage: COPAXONE 40MG/ML
     Route: 058
     Dates: start: 20170628, end: 20170728
  3. COPAXONE [Suspect]
     Active Substance: GLATIRAMER ACETATE
     Indication: MULTIPLE SCLEROSIS
     Dosage: 20 MILLIGRAM/MILLILITERS DAILY; COPAXONE 20MG/ML
     Route: 058
     Dates: start: 20160624, end: 20170627
  4. PRENATAL VITAMINS [Concomitant]
     Active Substance: VITAMINS
  5. VITAMIN D [Concomitant]
     Active Substance: CHOLECALCIFEROL

REACTIONS (2)
  - Maternal exposure during pregnancy [Unknown]
  - Normal newborn [Unknown]

NARRATIVE: CASE EVENT DATE: 20180225
